FAERS Safety Report 24277972 (Version 1)
Quarter: 2024Q3

REPORT INFORMATION
  Report Type: Spontaneous
  Country: ZA (occurrence: ZA)
  Receive Date: 20240903
  Receipt Date: 20240903
  Transmission Date: 20241017
  Serious: Yes (Hospitalization, Other)
  Sender: NOVARTIS
  Company Number: ZA-002147023-NVSC2024ZA174437

PATIENT
  Sex: Male

DRUGS (2)
  1. CYCLOSPORINE [Suspect]
     Active Substance: CYCLOSPORINE
     Indication: Product used for unknown indication
     Dosage: UNK
     Route: 065
  2. ATGAM [Suspect]
     Active Substance: EQUINE THYMOCYTE IMMUNE GLOBULIN
     Indication: Product used for unknown indication
     Dosage: UNK
     Route: 065

REACTIONS (16)
  - Pain [Unknown]
  - Metal poisoning [Unknown]
  - Neoplasm malignant [Unknown]
  - Epilepsy [Unknown]
  - Abdominal pain upper [Unknown]
  - Renal pain [Unknown]
  - Headache [Unknown]
  - Balance disorder [Unknown]
  - Confusional state [Unknown]
  - Peripheral swelling [Unknown]
  - Chest pain [Unknown]
  - Night sweats [Unknown]
  - Arthralgia [Unknown]
  - Back pain [Unknown]
  - Hypertension [Unknown]
  - Neck pain [Unknown]

NARRATIVE: CASE EVENT DATE: 20190101
